FAERS Safety Report 17957037 (Version 2)
Quarter: 2020Q3

REPORT INFORMATION
  Report Type: Spontaneous
  Country: UY (occurrence: UY)
  Receive Date: 20200629
  Receipt Date: 20200729
  Transmission Date: 20201103
  Serious: Yes (Other)
  Sender: FDA-Public Use
  Company Number: UY-PFIZER INC-2020248025

PATIENT
  Age: 44 Year
  Sex: Female

DRUGS (2)
  1. ENBREL [Suspect]
     Active Substance: ETANERCEPT
     Dosage: 50 MG, WEEKLY
     Dates: start: 201903
  2. SULFASALAZINE. [Suspect]
     Active Substance: SULFASALAZINE
     Dosage: 1500 MG, ONCE A DAY

REACTIONS (5)
  - Asthenia [Unknown]
  - Hypoxia [Unknown]
  - Sinus tachycardia [Unknown]
  - Dyspnoea exertional [Unknown]
  - Tachycardia [Unknown]
